FAERS Safety Report 25413365 (Version 2)
Quarter: 2025Q4

REPORT INFORMATION
  Report Type: Spontaneous
  Country: US (occurrence: US)
  Receive Date: 20250609
  Receipt Date: 20251007
  Transmission Date: 20260119
  Serious: Yes (Other)
  Sender: BRISTOL-MYERS SQUIBB COMPANY
  Company Number: US-BRISTOL-MYERS SQUIBB COMPANY-2025-081212

PATIENT
  Age: 39 Year
  Sex: Female

DRUGS (5)
  1. IDHIFA [Suspect]
     Active Substance: ENASIDENIB MESYLATE
     Indication: Acute myeloid leukaemia
     Dates: start: 20250605
  2. REZUROCK [Suspect]
     Active Substance: BELUMOSUDIL
     Indication: Acute myeloid leukaemia
  3. REZUROCK [Suspect]
     Active Substance: BELUMOSUDIL
     Dates: start: 20250508
  4. JAKAFI [Concomitant]
     Active Substance: RUXOLITINIB
     Indication: Acute myeloid leukaemia
  5. REZLIDHIA [Concomitant]
     Active Substance: OLUTASIDENIB
     Indication: Product used for unknown indication

REACTIONS (5)
  - Liver function test increased [Unknown]
  - Blood bilirubin increased [Unknown]
  - Fatigue [Unknown]
  - Renal failure [Unknown]
  - Chest pain [Unknown]
